FAERS Safety Report 8319139-3 (Version None)
Quarter: 2012Q2

REPORT INFORMATION
  Report Type: 
  Country: None (occurrence: None)
  Receive Date: 20120427
  Receipt Date: 20120419
  Transmission Date: 20120825
  Serious: Yes (Hospitalization)
  Sender: FDA-Public Use
  Company Number: ES-MERCK-1204ESP00031

PATIENT
  Age: 36 Year
  Sex: Female

DRUGS (4)
  1. DICLOFENAC EPOLAMINE [Suspect]
     Indication: PAIN
     Route: 030
     Dates: start: 20101221, end: 20110831
  2. IBUPROFEN [Suspect]
     Indication: PAIN
     Route: 048
     Dates: start: 20100803, end: 20110830
  3. JANUMET [Suspect]
     Indication: DIABETES MELLITUS
     Route: 048
     Dates: start: 20101004, end: 20110830
  4. NAPROXEN [Suspect]
     Indication: PAIN
     Route: 048
     Dates: start: 20110525, end: 20110831

REACTIONS (3)
  - RENAL FAILURE ACUTE [None]
  - DRUG INTERACTION [None]
  - TUBULOINTERSTITIAL NEPHRITIS [None]
